FAERS Safety Report 8243969-X (Version None)
Quarter: 2012Q1

REPORT INFORMATION
  Report Type: 
  Country: None (occurrence: None)
  Receive Date: 20120329
  Receipt Date: 20111205
  Transmission Date: 20120608
  Serious: No
  Sender: FDA-Public Use
  Company Number: US-MYLANLABS-2011S1022125

PATIENT
  Age: 71 Year
  Sex: Female
  Weight: 75.75 kg

DRUGS (8)
  1. OMEPRAZOLE [Concomitant]
  2. VITAMIN TAB [Concomitant]
  3. VITAMIN D [Concomitant]
  4. GEMFIBROZIL [Concomitant]
  5. SIMVASTATIN [Concomitant]
  6. ESTRADIOL [Suspect]
     Indication: HORMONE REPLACEMENT THERAPY
     Dosage: CHANGED QW
     Route: 062
     Dates: start: 20110831, end: 20111028
  7. ESTRADIOL [Suspect]
     Indication: MENOPAUSE
     Dosage: CHANGED QW
     Route: 062
     Dates: start: 20110831, end: 20111028
  8. CALCIUM CARBONATE [Concomitant]

REACTIONS (9)
  - APPLICATION SITE PRURITUS [None]
  - ALOPECIA [None]
  - DRUG EFFECT INCREASED [None]
  - ACNE [None]
  - SEBORRHOEA [None]
  - BREAST PAIN [None]
  - SKIN IRRITATION [None]
  - APPLICATION SITE ERYTHEMA [None]
  - HAIR DISORDER [None]
